FAERS Safety Report 13010126 (Version 1)
Quarter: 2016Q4

REPORT INFORMATION
  Report Type: Spontaneous
  Country: CA (occurrence: US)
  Receive Date: 20161206
  Receipt Date: 20161206
  Transmission Date: 20170207
  Serious: Yes (Hospitalization)
  Sender: FDA-Public Use
  Company Number: None

PATIENT
  Age: 60 Year
  Sex: Female
  Weight: 58.2 kg

DRUGS (1)
  1. CISPLATIN. [Suspect]
     Active Substance: CISPLATIN
     Dates: end: 20161129

REACTIONS (5)
  - Drug hypersensitivity [None]
  - Nausea [None]
  - Body temperature increased [None]
  - Malaise [None]
  - Rash [None]

NARRATIVE: CASE EVENT DATE: 20161129
